FAERS Safety Report 23232689 (Version 1)
Quarter: 2023Q4

REPORT INFORMATION
  Report Type: Spontaneous
  Country: FR (occurrence: FR)
  Receive Date: 20231128
  Receipt Date: 20231128
  Transmission Date: 20240109
  Serious: Yes (Life-Threatening, Hospitalization, Other)
  Sender: FDA-Public Use
  Company Number: FR-UCBSA-2023050270

PATIENT
  Sex: Male
  Weight: 77 kg

DRUGS (13)
  1. BIMZELX [Suspect]
     Active Substance: BIMEKIZUMAB-BKZX
     Indication: Psoriasis
     Dosage: 160 MILLIGRAM,UNK
     Dates: start: 20230224, end: 20230620
  2. TERALITHE [Concomitant]
     Active Substance: LITHIUM CARBONATE
     Indication: Bipolar disorder
     Dosage: MORE THAN 5 YEARS
  3. EUPANTOL [Concomitant]
     Active Substance: PANTOPRAZOLE SODIUM
     Indication: Embolism
     Dosage: UNK
  4. URAPIDIL HYDROCHLORIDE [Concomitant]
     Active Substance: URAPIDIL HYDROCHLORIDE
     Indication: Embolism
     Dosage: UNK
  5. PROZAC [Concomitant]
     Active Substance: FLUOXETINE HYDROCHLORIDE
     Indication: Embolism
     Dosage: UNK
  6. ALPRAZOLAM [Concomitant]
     Active Substance: ALPRAZOLAM
     Indication: Embolism
     Dosage: UNK
  7. CALCI [CALCIUM CARBONATE] [Concomitant]
     Indication: Embolism
     Dosage: MORNING AND EVENING
  8. LITHIUM [Concomitant]
     Active Substance: LITHIUM
     Indication: Product used for unknown indication
     Dosage: UNK
  9. TREMFYA [Concomitant]
     Active Substance: GUSELKUMAB
     Indication: Product used for unknown indication
     Dosage: UNK
     Dates: start: 2021
  10. AMOXICILLIN [Concomitant]
     Active Substance: AMOXICILLIN
     Indication: Product used for unknown indication
     Dosage: UNK
  11. DOLIPRANE [Concomitant]
     Active Substance: ACETAMINOPHEN
     Indication: Product used for unknown indication
     Dosage: UNK
  12. ECONAZOLE [Concomitant]
     Active Substance: ECONAZOLE
     Indication: Product used for unknown indication
     Dosage: UNK
  13. HEPARIN [Concomitant]
     Active Substance: HEPARIN SODIUM
     Indication: Product used for unknown indication
     Dosage: 1900 INTERNATIONAL UNIT PER HOUR, ANTI-ZA 0.3-0.6
     Route: 042

REACTIONS (29)
  - Compartment syndrome [Not Recovered/Not Resolved]
  - Dermo-hypodermitis [Not Recovered/Not Resolved]
  - Rhabdomyolysis [Unknown]
  - Muscle necrosis [Unknown]
  - Acute kidney injury [Unknown]
  - Septic shock [Unknown]
  - Vasoplegia syndrome [Unknown]
  - Deep vein thrombosis [Unknown]
  - Oedema [Unknown]
  - Osteitis [Unknown]
  - Hyperaesthesia [Unknown]
  - Abscess drainage [Unknown]
  - Abscess [Unknown]
  - Asthenia [Unknown]
  - Oedema [Unknown]
  - Confusional state [Unknown]
  - Hyperhidrosis [Unknown]
  - Tachypnoea [Unknown]
  - Auscultation [Unknown]
  - Somnolence [Unknown]
  - Thirst [Unknown]
  - Hypotension [Unknown]
  - Sinus tachycardia [Unknown]
  - Peripheral coldness [Unknown]
  - Diarrhoea [Unknown]
  - Inflammation [Unknown]
  - Blister [Recovered/Resolved]
  - Limb injury [Unknown]
  - Bacterial infection [Unknown]

NARRATIVE: CASE EVENT DATE: 20230101
